FAERS Safety Report 9884987 (Version 9)
Quarter: 2014Q2

REPORT INFORMATION
  Report Type: Spontaneous
  Country: US (occurrence: US)
  Receive Date: 20140210
  Receipt Date: 20140516
  Transmission Date: 20141212
  Serious: Yes (Hospitalization, Other)
  Sender: FDA-Public Use
  Company Number: US-VERTEX PHARMACEUTICALS INC-2014-000536

PATIENT
  Age: 37 Year
  Sex: Female
  Weight: 50.79 kg

DRUGS (3)
  1. INCIVEK [Suspect]
     Indication: HEPATITIS C
     Dosage: 750 MG, TID
     Route: 048
     Dates: start: 20140131, end: 20140425
  2. RIBAVIRIN [Suspect]
     Indication: HEPATITIS C
     Dosage: 2 DF, BID
     Route: 048
     Dates: start: 20140131
  3. PEGASYS [Suspect]
     Indication: HEPATITIS C
     Dosage: 180 ?G, QW
     Route: 058
     Dates: start: 20140131

REACTIONS (19)
  - Chest pain [Not Recovered/Not Resolved]
  - Dyspnoea [Recovered/Resolved]
  - Depression [Recovering/Resolving]
  - Headache [Not Recovered/Not Resolved]
  - Weight increased [Recovering/Resolving]
  - Abdominal discomfort [Recovering/Resolving]
  - Pain [Not Recovered/Not Resolved]
  - Abdominal pain upper [Recovering/Resolving]
  - Back pain [Recovering/Resolving]
  - Influenza like illness [Not Recovered/Not Resolved]
  - Oropharyngeal pain [Not Recovered/Not Resolved]
  - Alopecia [Not Recovered/Not Resolved]
  - Sleep disorder [Recovering/Resolving]
  - Asthenia [Not Recovered/Not Resolved]
  - Fatigue [Not Recovered/Not Resolved]
  - Rash generalised [Recovered/Resolved]
  - Nausea [Not Recovered/Not Resolved]
  - Vomiting [Not Recovered/Not Resolved]
  - Rash pruritic [Not Recovered/Not Resolved]
